FAERS Safety Report 7817162-6 (Version None)
Quarter: 2011Q4

REPORT INFORMATION
  Report Type: 
  Country: None (occurrence: None)
  Receive Date: 20111017
  Receipt Date: 20111017
  Transmission Date: 20120403
  Serious: Yes (Death)
  Sender: FDA-Public Use
  Company Number: None

PATIENT
  Age: 78 Year
  Sex: Male
  Weight: 90 kg

DRUGS (15)
  1. RAPAFLO [Concomitant]
     Route: 048
  2. FOLTYX [Concomitant]
     Route: 048
  3. CRESTOR [Concomitant]
     Route: 048
  4. PREDNISONE [Concomitant]
     Route: 048
  5. TEKTURNA [Concomitant]
     Route: 048
  6. ACEBUTOLOL [Concomitant]
     Route: 048
  7. AVODART [Concomitant]
     Route: 048
  8. MYCOPHENOLATE MOFETIL (CELLCEPT) [Concomitant]
     Route: 048
  9. PROTONIX [Concomitant]
     Route: 048
  10. LASIX [Concomitant]
     Route: 048
  11. CLONIDINE [Concomitant]
     Route: 048
  12. NORVASC [Concomitant]
     Route: 048
  13. PRADAXA [Suspect]
     Indication: ATRIAL FIBRILLATION
     Dosage: 75 MG
     Route: 048
     Dates: start: 20110528, end: 20110919
  14. JANUVIA [Concomitant]
     Route: 048
  15. SYNTHROID [Concomitant]
     Route: 048

REACTIONS (1)
  - CEREBRAL HAEMORRHAGE [None]
